FAERS Safety Report 5759965-8 (Version None)
Quarter: 2008Q2

REPORT INFORMATION
  Report Type: 
  Country: None (occurrence: None)
  Receive Date: 20080605
  Receipt Date: 20080528
  Transmission Date: 20081010
  Serious: Yes (Death, Disabling)
  Sender: FDA-Public Use
  Company Number: US-BAYER-200824301NA

PATIENT
  Sex: Male

DRUGS (1)
  1. MAGNEVIST [Suspect]
     Indication: NUCLEAR MAGNETIC RESONANCE IMAGING
     Dates: start: 20060622, end: 20060622

REACTIONS (18)
  - ANXIETY [None]
  - ASTHENIA [None]
  - FEAR [None]
  - GAIT DISTURBANCE [None]
  - GENERAL PHYSICAL HEALTH DETERIORATION [None]
  - IMPAIRED SELF-CARE [None]
  - INJURY [None]
  - JOINT RANGE OF MOTION DECREASED [None]
  - MOBILITY DECREASED [None]
  - MUSCULOSKELETAL STIFFNESS [None]
  - NEPHROGENIC SYSTEMIC FIBROSIS [None]
  - PAIN [None]
  - PRURITUS GENERALISED [None]
  - QUALITY OF LIFE DECREASED [None]
  - SENSORY LOSS [None]
  - SKIN DISCOLOURATION [None]
  - SKIN DISORDER [None]
  - SKIN TIGHTNESS [None]
